FAERS Safety Report 8096150-1 (Version None)
Quarter: 2012Q1

REPORT INFORMATION
  Report Type: 
  Country: None (occurrence: None)
  Receive Date: 20120131
  Receipt Date: 20120123
  Transmission Date: 20120608
  Serious: Yes (Life-Threatening, Hospitalization)
  Sender: FDA-Public Use
  Company Number: JP-GLAXOSMITHKLINE-B0774523A

PATIENT
  Sex: Female

DRUGS (6)
  1. PAXIL [Suspect]
     Indication: PANIC DISORDER
     Route: 048
     Dates: end: 20111122
  2. CHINESE MEDICINE [Concomitant]
     Indication: PANIC DISORDER
     Dosage: 7.5MG PER DAY
     Route: 048
     Dates: end: 20111122
  3. PA [Concomitant]
     Indication: NASOPHARYNGITIS
     Dosage: 6IUAX PER DAY
     Route: 048
     Dates: start: 20111119, end: 20111122
  4. ALOSENN [Concomitant]
     Dosage: 1G PER DAY
     Route: 048
  5. ASTOMIN [Concomitant]
     Indication: NASOPHARYNGITIS
     Dosage: 3IUAX PER DAY
     Route: 048
     Dates: start: 20111119, end: 20111122
  6. DORAL [Concomitant]
     Indication: PANIC DISORDER
     Dosage: 20MG PER DAY
     Route: 048
     Dates: end: 20111122

REACTIONS (15)
  - LUNG DISORDER [None]
  - CHEST X-RAY ABNORMAL [None]
  - PNEUMONIA [None]
  - PNEUMONIA PRIMARY ATYPICAL [None]
  - HYPOXIA [None]
  - RALES [None]
  - PLEURAL EFFUSION [None]
  - HEADACHE [None]
  - PYREXIA [None]
  - ASTHENIA [None]
  - INTERSTITIAL LUNG DISEASE [None]
  - ALTERED STATE OF CONSCIOUSNESS [None]
  - DECREASED APPETITE [None]
  - TACHYPNOEA [None]
  - DYSARTHRIA [None]
